FAERS Safety Report 8812430 (Version 2)
Quarter: 2012Q4

REPORT INFORMATION
  Report Type: 
  Country: US (occurrence: US)
  Receive Date: 20120927
  Receipt Date: 20121024
  Transmission Date: 20130627
  Serious: Yes (Hospitalization, Other)
  Sender: FDA-Public Use
  Company Number: US-PFIZER INC-2012238078

PATIENT
  Age: 88 Year
  Sex: Female
  Weight: 45.35 kg

DRUGS (2)
  1. CADUET [Suspect]
     Dosage: UNK
     Route: 048
  2. GABAPENTIN [Concomitant]
     Dosage: UNK

REACTIONS (8)
  - Feeling abnormal [Recovered/Resolved]
  - Malaise [Recovered/Resolved]
  - Vomiting [Recovered/Resolved]
  - Asthenia [Not Recovered/Not Resolved]
  - Gastrointestinal disorder [Unknown]
  - Cardiac disorder [Not Recovered/Not Resolved]
  - Cardiac flutter [Not Recovered/Not Resolved]
  - Blood glucose decreased [Unknown]
